FAERS Safety Report 4934136-3 (Version None)
Quarter: 2006Q1

REPORT INFORMATION
  Report Type: 
  Country: None (occurrence: None)
  Receive Date: 20060307
  Receipt Date: 20060301
  Transmission Date: 20060701
  Serious: Yes (Life-Threatening, Hospitalization)
  Sender: FDA-Public Use
  Company Number: AT-JNJFOC-20041003915

PATIENT
  Age: 78 Year
  Sex: Male
  Weight: 91 kg

DRUGS (3)
  1. REMICADE [Suspect]
     Route: 042
  2. PLAVIX [Concomitant]
  3. METHOTREXATE [Concomitant]
     Route: 048

REACTIONS (5)
  - BILE DUCT CANCER [None]
  - CARBOHYDRATE ANTIGEN 19-9 INCREASED [None]
  - CHOLESTASIS [None]
  - HEPATOBLASTOMA [None]
  - INFECTION [None]
